FAERS Safety Report 7655286-7 (Version None)
Quarter: 2011Q3

REPORT INFORMATION
  Report Type: 
  Country: None (occurrence: None)
  Receive Date: 20110729
  Receipt Date: 20110718
  Transmission Date: 20111222
  Serious: Yes (Other)
  Sender: FDA-Public Use
  Company Number: 2011SP033686

PATIENT
  Age: 28 Year
  Sex: Female
  Weight: 79 kg

DRUGS (1)
  1. CERAZETTE (DESOGESTREL /00754001/) [Suspect]
     Indication: CONTRACEPTION
     Dosage: QD, PO
     Route: 048
     Dates: start: 20100801

REACTIONS (1)
  - ASTHMA [None]
